FAERS Safety Report 6378600-1 (Version None)
Quarter: 2009Q3

REPORT INFORMATION
  Report Type: 
  Country: None (occurrence: None)
  Receive Date: 20090928
  Receipt Date: 20090917
  Transmission Date: 20100115
  Serious: Yes (Other)
  Sender: FDA-Public Use
  Company Number: US-JNJFOC-20090905397

PATIENT
  Sex: Male
  Weight: 120.66 kg

DRUGS (6)
  1. REMICADE [Suspect]
     Indication: COLITIS ULCERATIVE
     Route: 042
     Dates: start: 20060707, end: 20090917
  2. ZANTAC [Concomitant]
  3. ANDROGEL [Concomitant]
  4. WELLBUTRIN [Concomitant]
  5. SINGULAIR [Concomitant]
  6. SOMA [Concomitant]

REACTIONS (1)
  - RESORPTION BONE INCREASED [None]
